FAERS Safety Report 5783144-1 (Version None)
Quarter: 2008Q2

REPORT INFORMATION
  Report Type: 
  Country: None (occurrence: None)
  Receive Date: 20080624
  Receipt Date: 20080618
  Transmission Date: 20081010
  Serious: Yes (Other)
  Sender: FDA-Public Use
  Company Number: US-ROCHE-570764

PATIENT
  Age: 24 Year
  Sex: Female

DRUGS (1)
  1. ACCUTANE [Suspect]
     Indication: DRUG USE FOR UNKNOWN INDICATION
     Dosage: PATIENT RECEIVED 20 MG IN AM AND 10 MG IN PM.
     Route: 065
     Dates: start: 20080501, end: 20080616

REACTIONS (7)
  - ANXIETY [None]
  - DRY EYE [None]
  - EYE SWELLING [None]
  - HEADACHE [None]
  - HYPOAESTHESIA FACIAL [None]
  - NAUSEA [None]
  - PAIN [None]
